FAERS Safety Report 12283809 (Version 1)
Quarter: 2016Q2

REPORT INFORMATION
  Report Type: Spontaneous
  Country: US (occurrence: US)
  Receive Date: 20160419
  Receipt Date: 20160419
  Transmission Date: 20160815
  Serious: Yes (Life-Threatening, Other)
  Sender: FDA-Public Use
  Company Number: US-BANPHARM-20164563

PATIENT
  Age: 44 Year
  Sex: Female
  Weight: 72.57 kg

DRUGS (5)
  1. ALBUTEROL. [Concomitant]
     Active Substance: ALBUTEROL
  2. ATORVASTATIN [Concomitant]
     Active Substance: ATORVASTATIN
  3. HYDROCHLOROTHIAZIDE. [Concomitant]
     Active Substance: HYDROCHLOROTHIAZIDE
  4. ALEVE [Suspect]
     Active Substance: NAPROXEN SODIUM
     Route: 048
  5. MIDOL [Suspect]
     Active Substance: IBUPROFEN
     Indication: PREMENSTRUAL PAIN

REACTIONS (4)
  - Anaphylactic reaction [Unknown]
  - Pharyngeal oedema [Unknown]
  - Eye swelling [Unknown]
  - Lip swelling [Unknown]
